FAERS Safety Report 6991393-X (Version None)
Quarter: 2010Q3

REPORT INFORMATION
  Report Type: 
  Country: None (occurrence: None)
  Receive Date: 20100916
  Receipt Date: 20090708
  Transmission Date: 20110219
  Serious: No
  Sender: FDA-Public Use
  Company Number: US-WYE-H10079509

PATIENT
  Sex: Female

DRUGS (1)
  1. RAPAMUNE [Suspect]
     Indication: PROPHYLAXIS AGAINST TRANSPLANT REJECTION
     Dosage: DOSE AND FREQUENCY NOT SPECIFIED
     Route: 048

REACTIONS (1)
  - OVARIAN DISORDER [None]
